FAERS Safety Report 5201021-1 (Version None)
Quarter: 2007Q1

REPORT INFORMATION
  Report Type: 
  Country: None (occurrence: None)
  Receive Date: 20070108
  Receipt Date: 20070103
  Transmission Date: 20070707
  Serious: Yes (Other)
  Sender: FDA-Public Use
  Company Number: GB-GLAXOSMITHKLINE-B0453061A

PATIENT

DRUGS (5)
  1. ZINACEF [Suspect]
     Indication: PROPHYLAXIS
     Dosage: 125MG SINGLE DOSE
     Route: 057
     Dates: start: 20060913, end: 20060913
  2. BALANCED SALT SOLUTION [Concomitant]
     Route: 031
     Dates: start: 20060913, end: 20060913
  3. LIGNOCAINE [Concomitant]
     Route: 057
     Dates: start: 20060913, end: 20060913
  4. CYCLOPENTOLATE HCL [Concomitant]
     Route: 031
     Dates: start: 20060913, end: 20060913
  5. PHENYLEPHRINE [Concomitant]
     Route: 031
     Dates: start: 20060913, end: 20060913

REACTIONS (3)
  - CORNEAL OEDEMA [None]
  - VISION BLURRED [None]
  - WRONG TECHNIQUE IN DRUG USAGE PROCESS [None]
